FAERS Safety Report 4737962-9 (Version None)
Quarter: 2005Q3

REPORT INFORMATION
  Report Type: 
  Country: None (occurrence: None)
  Receive Date: 20050803
  Receipt Date: 20050719
  Transmission Date: 20060218
  Serious: Yes (Hospitalization)
  Sender: FDA-Public Use
  Company Number: 430008E05GBR

PATIENT
  Age: 43 Year
  Sex: Female

DRUGS (2)
  1. NOVANTRONE [Suspect]
     Indication: ACUTE MYELOID LEUKAEMIA
  2. CYTARABINE [Concomitant]

REACTIONS (3)
  - NAUSEA [None]
  - NEUTROPENIC SEPSIS [None]
  - VOMITING [None]
